FAERS Safety Report 6035485-0 (Version None)
Quarter: 2009Q1

REPORT INFORMATION
  Report Type: 
  Country: None (occurrence: None)
  Receive Date: 20090112
  Receipt Date: 20090112
  Transmission Date: 20090719
  Serious: No
  Sender: FDA-Public Use
  Company Number: None

PATIENT
  Sex: Female
  Weight: 52.1637 kg

DRUGS (2)
  1. NASONEX [Suspect]
     Indication: ASTHMA
     Dosage: 2 SPRAYS ONCE PER DAY NASAL
     Route: 045
     Dates: start: 20080916, end: 20081210
  2. NASONEX [Suspect]
     Indication: NASAL CONGESTION
     Dosage: 2 SPRAYS ONCE PER DAY NASAL
     Route: 045
     Dates: start: 20080916, end: 20081210

REACTIONS (1)
  - ANOSMIA [None]
